FAERS Safety Report 5708401-6 (Version None)
Quarter: 2008Q2

REPORT INFORMATION
  Report Type: 
  Country: None (occurrence: None)
  Receive Date: 20080417
  Receipt Date: 20080409
  Transmission Date: 20081010
  Serious: No
  Sender: FDA-Public Use
  Company Number: US-ELI_LILLY_AND_COMPANY-US200803005013

PATIENT
  Sex: Female
  Weight: 96.599 kg

DRUGS (20)
  1. BYETTA [Suspect]
     Dosage: 5 UG, 2/D
     Route: 058
     Dates: start: 20050101, end: 20050101
  2. BYETTA [Suspect]
     Dosage: 10 UG, 2/D
     Route: 058
     Dates: start: 20050101
  3. XYZAL [Concomitant]
     Indication: HYPERSENSITIVITY
     Dosage: 5 MG, EACH EVENING
     Route: 048
  4. LEXAPRO [Concomitant]
     Indication: DEPRESSION
     Dosage: 20 MG, DAILY (1/D)
     Route: 048
  5. PROMETRIUM [Concomitant]
     Dosage: 200 MG, DAILY (1/D)
     Route: 048
  6. NITROSTAT [Concomitant]
     Indication: CHEST PAIN
     Dosage: 0.4 MG, AS NEEDED
     Route: 048
  7. ASPIRIN [Concomitant]
     Indication: CARDIOVASCULAR EVENT PROPHYLAXIS
     Dosage: 81 MG, DAILY (1/D)
     Route: 048
  8. COREG [Concomitant]
     Indication: HYPERTENSION
     Dosage: 12 MG, DAILY (1/D)
     Route: 048
  9. COZAAR [Concomitant]
     Indication: HYPERTENSION
     Dosage: UNK, DAILY (1/D)
     Route: 048
  10. LIPITOR [Concomitant]
     Indication: HYPERTENSION
     Dosage: 40 MG, DAILY (1/D)
     Route: 048
  11. PREVACID [Concomitant]
     Indication: GASTROOESOPHAGEAL REFLUX DISEASE
     Dosage: 30 MG, DAILY (1/D)
     Route: 048
  12. FISH OIL [Concomitant]
     Indication: SUPPLEMENTATION THERAPY
     Dosage: 100 MG, 2/D
     Route: 048
  13. NASAL SALINE [Concomitant]
     Indication: HYPERSENSITIVITY
     Dosage: UNK, AS NEEDED
     Route: 045
  14. VITAMIN B-12 [Concomitant]
     Indication: NERVE DEGENERATION
     Dosage: UNK, DAILY (1/D)
     Route: 048
  15. CALCIUM WITH VITAMIN D /00944201/ [Concomitant]
     Indication: BONE DISORDER
     Dosage: 600 MG, 3/D
     Route: 048
  16. MULTI-VITAMIN [Concomitant]
     Indication: VITAMIN SUPPLEMENTATION
     Dosage: UNK, DAILY (1/D)
  17. EMOLLIENTS AND PROTECTIVES [Concomitant]
     Indication: DRY SKIN
     Dosage: UNK, UNKNOWN
  18. PLATELETS [Concomitant]
     Indication: ANAEMIA
     Dosage: UNK, UNKNOWN
  19. ACTOS [Concomitant]
     Dosage: 15 MG, DAILY (1/D)
     Route: 048
  20. METFORMIN HCL [Concomitant]
     Dosage: 850 MG, DAILY (1/D)
     Route: 048

REACTIONS (6)
  - ABDOMINAL PAIN [None]
  - CONFUSION POSTOPERATIVE [None]
  - DIARRHOEA [None]
  - GASTRIC HAEMORRHAGE [None]
  - MENTAL IMPAIRMENT [None]
  - NEPHROLITHIASIS [None]
